FAERS Safety Report 7481621-9 (Version None)
Quarter: 2011Q2

REPORT INFORMATION
  Report Type: 
  Country: None (occurrence: None)
  Receive Date: 20110516
  Receipt Date: 20110427
  Transmission Date: 20111010
  Serious: No
  Sender: FDA-Public Use
  Company Number: US-B.I. PHARMACEUTICALS,INC./RIDGEFIELD-2011-BP-07765BP

PATIENT
  Sex: Female

DRUGS (6)
  1. DILTIAZEM [Concomitant]
  2. ATERCAL [Concomitant]
  3. ASPIRIN [Concomitant]
  4. AMITRIPTYLINE HCL [Concomitant]
  5. LISINOPRIL [Concomitant]
  6. PRADAXA [Suspect]
     Indication: ATRIAL FIBRILLATION

REACTIONS (3)
  - VASCULAR INJURY [None]
  - CONTUSION [None]
  - DYSPEPSIA [None]
